FAERS Safety Report 5299145-6 (Version None)
Quarter: 2007Q2

REPORT INFORMATION
  Report Type: 
  Country: None (occurrence: None)
  Receive Date: 20070417
  Receipt Date: 20070404
  Transmission Date: 20071010
  Serious: Yes (Other)
  Sender: FDA-Public Use
  Company Number: PHFR2007GB01257

PATIENT
  Age: 60 Year
  Sex: Male
  Weight: 85 kg

DRUGS (1)
  1. TERBINAFINE [Suspect]
     Dosage: 250 MG, QD
     Route: 048
     Dates: start: 20060829, end: 20070213

REACTIONS (1)
  - HAEMATOSPERMIA [None]
